FAERS Safety Report 4758090-2 (Version None)
Quarter: 2005Q3

REPORT INFORMATION
  Report Type: 
  Country: None (occurrence: None)
  Receive Date: 20050829
  Receipt Date: 20050822
  Transmission Date: 20060218
  Serious: Yes (Hospitalization)
  Sender: FDA-Public Use
  Company Number: 2005108480

PATIENT
  Age: 45 Year
  Sex: Female
  Weight: 58.5 kg

DRUGS (2)
  1. SULFASALAZINE [Suspect]
     Indication: COLITIS
     Dosage: 3 GRAM 1 GRAM, TID, ORAL
     Route: 048
     Dates: start: 20050711, end: 20050720
  2. SELBEX TEPRENONE) [Concomitant]

REACTIONS (2)
  - DRUG ERUPTION [None]
  - PANCYTOPENIA [None]
